FAERS Safety Report 18411421 (Version 2)
Quarter: 2020Q4

REPORT INFORMATION
  Report Type: Spontaneous
  Country: US (occurrence: US)
  Receive Date: 20201021
  Receipt Date: 20201113
  Transmission Date: 20210114
  Serious: Yes (Other)
  Sender: FDA-Public Use
  Company Number: US-BAYER-2020-222759

PATIENT
  Age: 58 Year
  Sex: Female
  Weight: 48.08 kg

DRUGS (2)
  1. ASPIRIN (PAIN AND FEVER) [Suspect]
     Active Substance: ASPIRIN
  2. GENOTROPIN [Concomitant]
     Active Substance: SOMATROPIN
     Dosage: 0.4 MG

REACTIONS (3)
  - Headache [Recovered/Resolved]
  - Thrombosis [Recovered/Resolved]
  - Expired product administered [Unknown]
